FAERS Safety Report 25541681 (Version 3)
Quarter: 2025Q4

REPORT INFORMATION
  Report Type: Spontaneous
  Country: US (occurrence: US)
  Receive Date: 20250711
  Receipt Date: 20251106
  Transmission Date: 20260119
  Serious: Yes (Hospitalization, Other)
  Sender: UPSHER SMITH LABORATORIES
  Company Number: US-UPSHER-SMITH LABORATORIES, LLC-20250700970

PATIENT
  Sex: Female

DRUGS (5)
  1. VIGADRONE [Suspect]
     Active Substance: VIGABATRIN
     Indication: Infantile spasms
     Dosage: 600 MG (12 ML), BID
     Route: 048
     Dates: start: 20250109
  2. VIGADRONE [Suspect]
     Active Substance: VIGABATRIN
     Dosage: 600 MG (12 ML), BID
     Dates: start: 20250109
  3. VIGADRONE [Suspect]
     Active Substance: VIGABATRIN
     Dosage: 640 MG (12.8 ML), BID
     Dates: start: 2025
  4. VIGADRONE [Suspect]
     Active Substance: VIGABATRIN
     Dosage: 600 MG, BID (12 ML)
     Dates: start: 20250109
  5. VIGADRONE [Suspect]
     Active Substance: VIGABATRIN
     Dosage: 600 MG, BID (12 ML)
     Dates: start: 20250109

REACTIONS (4)
  - Cellulitis [Not Recovered/Not Resolved]
  - Seizure [Unknown]
  - Sleep disorder [Unknown]
  - Abnormal behaviour [Unknown]

NARRATIVE: CASE EVENT DATE: 20250101
